FAERS Safety Report 22112481 (Version 1)
Quarter: 2023Q1

REPORT INFORMATION
  Report Type: Report from Study
  Country: ES (occurrence: ES)
  Receive Date: 20230319
  Receipt Date: 20230319
  Transmission Date: 20230417
  Serious: Yes (Other)
  Sender: FDA-Public Use
  Company Number: ES-UCBSA-2021010692

PATIENT

DRUGS (1)
  1. CIMZIA [Suspect]
     Active Substance: CERTOLIZUMAB PEGOL
     Indication: Psoriasis
     Dosage: UNK

REACTIONS (15)
  - COVID-19 pneumonia [Unknown]
  - Urticaria [Unknown]
  - Neoplasm [Unknown]
  - Infection [Unknown]
  - Skin disorder [Unknown]
  - Gastrointestinal disorder [Unknown]
  - Nervous system disorder [Unknown]
  - Musculoskeletal disorder [Unknown]
  - Respiratory disorder [Unknown]
  - Surgery [Unknown]
  - Hepatobiliary disease [Unknown]
  - Administration site reaction [Unknown]
  - Metabolic disorder [Unknown]
  - Mental disorder [Unknown]
  - Immune system disorder [Unknown]
